FAERS Safety Report 9426922 (Version 1)
Quarter: 2013Q3

REPORT INFORMATION
  Report Type: Spontaneous
  Country: JP (occurrence: JP)
  Receive Date: 20130730
  Receipt Date: 20130730
  Transmission Date: 20140515
  Serious: Yes (Death)
  Sender: FDA-Public Use
  Company Number: JP-ASTELLAS-2013JP007956

PATIENT
  Age: 76 Year
  Sex: Female
  Weight: 56.7 kg

DRUGS (7)
  1. FUNGUARD [Suspect]
     Indication: BLOOD BETA-D-GLUCAN INCREASED
     Dosage: 600 MG, UNKNOWN/D
     Route: 065
     Dates: start: 2009, end: 2009
  2. FUNGUARD [Suspect]
     Indication: ASPERGILLUS INFECTION
     Dosage: 50 MG, UNKNOWN/D
     Route: 065
     Dates: start: 2009, end: 2009
  3. FUNGUARD [Suspect]
     Dosage: 100 MG, UNKNOWN/D
     Route: 065
     Dates: start: 2009, end: 2009
  4. FUNGUARD [Suspect]
     Dosage: 150 MG, UNKNOWN/D
     Route: 065
     Dates: start: 2009, end: 2009
  5. FUNGUARD [Suspect]
     Dosage: 150 MG, UNKNOWN/D
     Route: 065
     Dates: start: 2009
  6. SULBACTAM [Concomitant]
     Indication: PYREXIA
     Dosage: UNK
     Route: 065
     Dates: start: 2009
  7. CEFOPERAZONE [Concomitant]
     Indication: PYREXIA
     Dosage: UNK
     Route: 065
     Dates: start: 2009

REACTIONS (3)
  - Drug ineffective [Unknown]
  - Aspergillus infection [Fatal]
  - Endocarditis [Fatal]
